FAERS Safety Report 8856150 (Version 1)
Quarter: 2012Q4

REPORT INFORMATION
  Report Type: Spontaneous
  Country: US (occurrence: None)
  Receive Date: 20121023
  Receipt Date: 20121023
  Transmission Date: 20130627
  Serious: Yes (Life-Threatening)
  Sender: FDA-Public Use
  Company Number: None

PATIENT
  Age: 47 Year
  Sex: Female
  Weight: 104.33 kg

DRUGS (1)
  1. AFLURIA [Suspect]
     Indication: FLU VACCINATION
     Route: 030
     Dates: start: 20121008

REACTIONS (1)
  - Hypersensitivity [None]
